FAERS Safety Report 7659639-2 (Version None)
Quarter: 2011Q3

REPORT INFORMATION
  Report Type: 
  Country: None (occurrence: None)
  Receive Date: 20110805
  Receipt Date: 20110725
  Transmission Date: 20111222
  Serious: Yes (Hospitalization)
  Sender: FDA-Public Use
  Company Number: CN-JNJFOC-20110104958

PATIENT
  Sex: Female
  Weight: 51 kg

DRUGS (6)
  1. METHOTREXATE [Concomitant]
     Indication: RHEUMATOID ARTHRITIS
     Route: 048
     Dates: start: 20100101, end: 20110112
  2. GOLIMUMAB [Suspect]
     Route: 058
     Dates: start: 20101109
  3. VITAMIN B-12 [Concomitant]
     Indication: RHEUMATOID ARTHRITIS
     Route: 048
     Dates: start: 20100101
  4. GOLIMUMAB [Suspect]
     Indication: RHEUMATOID ARTHRITIS
     Route: 058
     Dates: start: 20110107
  5. VITAMIN B1 TAB [Concomitant]
     Indication: RHEUMATOID ARTHRITIS
     Route: 048
     Dates: start: 20100101
  6. METHOTREXATE [Concomitant]
     Route: 048

REACTIONS (1)
  - GRANULOCYTOPENIA [None]
